FAERS Safety Report 6675381-9 (Version None)
Quarter: 2010Q2

REPORT INFORMATION
  Report Type: 
  Country: None (occurrence: None)
  Receive Date: 20100409
  Receipt Date: 20100226
  Transmission Date: 20101027
  Serious: No
  Sender: FDA-Public Use
  Company Number: A0850048A

PATIENT
  Sex: Female

DRUGS (2)
  1. TYKERB [Suspect]
  2. XELODA [Suspect]

REACTIONS (1)
  - DRUG EXPOSURE DURING PREGNANCY [None]
